FAERS Safety Report 15369449 (Version 1)
Quarter: 2018Q3

REPORT INFORMATION
  Report Type: Spontaneous
  Country: US (occurrence: US)
  Receive Date: 20180904
  Receipt Date: 20180904
  Transmission Date: 20181010
  Serious: Yes (Other)
  Sender: FDA-Public Use
  Company Number: None

PATIENT
  Sex: Female
  Weight: 62.1 kg

DRUGS (7)
  1. CAPECITABINE. [Suspect]
     Active Substance: CAPECITABINE
     Indication: COLON CANCER
     Route: 048
     Dates: start: 20180713, end: 20180904
  2. TYLENOL [Concomitant]
     Active Substance: ACETAMINOPHEN
  3. CLONAZEPAM. [Concomitant]
     Active Substance: CLONAZEPAM
  4. FERROUS GLUCONATE [Concomitant]
     Active Substance: FERROUS GLUCONATE
  5. PAXIL [Concomitant]
     Active Substance: PAROXETINE HYDROCHLORIDE
  6. CAPECITABINE. [Suspect]
     Active Substance: CAPECITABINE
     Indication: COLON CANCER
     Route: 048
     Dates: start: 20180713, end: 20180904
  7. DOXEPIN [Concomitant]
     Active Substance: DOXEPIN

REACTIONS (1)
  - Disease progression [None]
